FAERS Safety Report 21591796 (Version 1)
Quarter: 2022Q4

REPORT INFORMATION
  Report Type: Spontaneous
  Country: US (occurrence: US)
  Receive Date: 20221114
  Receipt Date: 20221114
  Transmission Date: 20230113
  Serious: Yes (Hospitalization, Other)
  Sender: FDA-Public Use
  Company Number: US-GLAXOSMITHKLINE-US2022GSK164320

PATIENT

DRUGS (2)
  1. BUPROPION [Suspect]
     Active Substance: BUPROPION
     Indication: Tobacco user
     Dosage: 150 MG
  2. BUPROPION [Suspect]
     Active Substance: BUPROPION
     Dosage: 300 MG, 1D

REACTIONS (4)
  - Dystonia [Recovered/Resolved]
  - Muscle contractions involuntary [Recovered/Resolved]
  - Temporomandibular joint syndrome [Recovered/Resolved]
  - Musculoskeletal stiffness [Recovered/Resolved]
